FAERS Safety Report 21042775 (Version 1)
Quarter: 2022Q3

REPORT INFORMATION
  Report Type: Spontaneous
  Country: US (occurrence: None)
  Receive Date: 20220704
  Receipt Date: 20220704
  Transmission Date: 20221027
  Serious: Yes (unspecified)
  Sender: FDA-Public Use
  Company Number: None

PATIENT
  Age: 35 Year
  Sex: Female
  Weight: 80.55 kg

DRUGS (2)
  1. VASOCAINE [Suspect]
     Active Substance: EPINEPHRINE HYDROCHLORIDE\LIDOCAINE HYDROCHLORIDE
  2. multi-vitamins [Concomitant]

REACTIONS (2)
  - Post procedural complication [None]
  - Suspected product quality issue [None]

NARRATIVE: CASE EVENT DATE: 20190301
